FAERS Safety Report 5826399-7 (Version None)
Quarter: 2008Q3

REPORT INFORMATION
  Report Type: 
  Country: None (occurrence: None)
  Receive Date: 20080729
  Receipt Date: 20080720
  Transmission Date: 20090109
  Serious: No
  Sender: FDA-Public Use
  Company Number: US-BOEHRINGER INGELHEIM GMBH, GERMANY-2008-BP-11506BP

PATIENT
  Sex: Female

DRUGS (10)
  1. CATAPRES-TTS-1 [Suspect]
     Indication: HYPERTENSION
     Route: 062
     Dates: start: 20080601
  2. ANAPROX [Concomitant]
     Indication: ARTHRITIS
     Route: 048
  3. PREMARIN [Concomitant]
     Route: 048
  4. ZIAC [Concomitant]
     Indication: HYPERTENSION
     Route: 048
  5. CLONIDINE [Concomitant]
     Indication: HYPERTENSION
     Route: 048
  6. PROTONIX [Concomitant]
     Indication: GASTROOESOPHAGEAL REFLUX DISEASE
     Route: 048
  7. PLAVIX [Concomitant]
     Route: 048
  8. FLONASE [Concomitant]
     Route: 045
  9. ADVAIR DISKUS 100/50 [Concomitant]
     Indication: ASTHMA
     Route: 048
  10. OXYTOSE [Concomitant]

REACTIONS (1)
  - RASH [None]
